FAERS Safety Report 14839107 (Version 1)
Quarter: 2018Q2

REPORT INFORMATION
  Report Type: Spontaneous
  Country: US (occurrence: US)
  Receive Date: 20180418
  Receipt Date: 20180418
  Transmission Date: 20180711
  Serious: No
  Sender: FDA-Public Use
  Company Number: None

PATIENT
  Age: 77 Year
  Sex: Male
  Weight: 73.35 kg

DRUGS (22)
  1. PREDNISONE. [Concomitant]
     Active Substance: PREDNISONE
  2. OXYCODONE AND ACETAMINOPHEN [Concomitant]
     Active Substance: ACETAMINOPHEN\OXYCODONE HYDROCHLORIDE
  3. PROBENECID. [Concomitant]
     Active Substance: PROBENECID
  4. PLAVIX [Concomitant]
     Active Substance: CLOPIDOGREL BISULFATE
  5. OXYBUTYNIN. [Concomitant]
     Active Substance: OXYBUTYNIN CHLORIDE
  6. GABAPENTIN. [Concomitant]
     Active Substance: GABAPENTIN
  7. LIPITOR [Concomitant]
     Active Substance: ATORVASTATIN CALCIUM
  8. ASPIRIN. [Concomitant]
     Active Substance: ASPIRIN
  9. TAMSULOSIN [Concomitant]
     Active Substance: TAMSULOSIN
  10. NITROSTAT [Concomitant]
     Active Substance: NITROGLYCERIN
  11. MULTIVITAMIN [Concomitant]
     Active Substance: VITAMINS
  12. FUROSEMIDE. [Concomitant]
     Active Substance: FUROSEMIDE
  13. ZYTIGA [Suspect]
     Active Substance: ABIRATERONE ACETATE
     Indication: PROSTATE CANCER
     Route: 048
     Dates: start: 20170925, end: 20180417
  14. ROZEREM [Concomitant]
     Active Substance: RAMELTEON
  15. TRAMADOL. [Concomitant]
     Active Substance: TRAMADOL
  16. HUMALOG [Concomitant]
     Active Substance: INSULIN LISPRO
  17. FLUTICASONE. [Concomitant]
     Active Substance: FLUTICASONE
  18. RANITIDINE. [Concomitant]
     Active Substance: RANITIDINE
  19. ISOSORBIDE MONONITRATE. [Concomitant]
     Active Substance: ISOSORBIDE MONONITRATE
  20. COLCHICINE. [Concomitant]
     Active Substance: COLCHICINE
  21. GLIMEPIRIDE. [Concomitant]
     Active Substance: GLIMEPIRIDE
  22. DIGOXIN. [Concomitant]
     Active Substance: DIGOXIN

REACTIONS (1)
  - Disease progression [None]

NARRATIVE: CASE EVENT DATE: 20180417
